FAERS Safety Report 6055570-7 (Version None)
Quarter: 2009Q1

REPORT INFORMATION
  Report Type: 
  Country: None (occurrence: None)
  Receive Date: 20090128
  Receipt Date: 20090122
  Transmission Date: 20090719
  Serious: Yes (Hospitalization)
  Sender: FDA-Public Use
  Company Number: B0556325A

PATIENT
  Age: 68 Year
  Sex: Male

DRUGS (2)
  1. ZOVIRAX [Suspect]
     Indication: HERPES ZOSTER
     Dosage: 2.25G PER DAY
     Route: 042
     Dates: start: 20090107, end: 20090109
  2. GABAPENTIN [Concomitant]
     Indication: HERPES ZOSTER
     Dosage: 600MG PER DAY
     Route: 048

REACTIONS (4)
  - BLOOD CREATININE INCREASED [None]
  - BLOOD UREA INCREASED [None]
  - HALLUCINATION [None]
  - PSYCHOTIC DISORDER [None]
